FAERS Safety Report 15097263 (Version 1)
Quarter: 2018Q3

REPORT INFORMATION
  Report Type: Spontaneous
  Country: IT (occurrence: IT)
  Receive Date: 20180702
  Receipt Date: 20180702
  Transmission Date: 20181010
  Serious: Yes (Other)
  Sender: FDA-Public Use
  Company Number: IT-TELIGENT, INC-IGIL20180354

PATIENT
  Age: 45 Year
  Sex: Male
  Weight: 45 kg

DRUGS (4)
  1. CEFTAZIDIME. [Suspect]
     Active Substance: CEFTAZIDIME
     Indication: KLEBSIELLA INFECTION
     Dosage: 2 GRAMS
     Route: 042
  2. COLIMICINA [Concomitant]
     Active Substance: COLISTIN SULFATE
     Indication: PRODUCT USED FOR UNKNOWN INDICATION
     Route: 065
  3. AVIBACTAM [Suspect]
     Active Substance: AVIBACTAM
     Indication: KLEBSIELLA INFECTION
     Dosage: 2 GRAMS
     Route: 042
  4. CIPROFLOXACIN. [Concomitant]
     Active Substance: CIPROFLOXACIN
     Indication: PRODUCT USED FOR UNKNOWN INDICATION
     Route: 065

REACTIONS (1)
  - Transaminases increased [Recovering/Resolving]

NARRATIVE: CASE EVENT DATE: 20171105
